FAERS Safety Report 21811799 (Version 1)
Quarter: 2023Q1

REPORT INFORMATION
  Report Type: Spontaneous
  Country: FR (occurrence: FR)
  Receive Date: 20230103
  Receipt Date: 20230103
  Transmission Date: 20230417
  Serious: Yes (Hospitalization, Other)
  Sender: FDA-Public Use
  Company Number: None

PATIENT
  Age: 71 Year
  Sex: Female

DRUGS (4)
  1. PIPERACILLIN SODIUM\TAZOBACTAM SODIUM [Suspect]
     Active Substance: PIPERACILLIN SODIUM\TAZOBACTAM SODIUM
     Indication: Sepsis
     Dosage: 4 G, 3X/DAY
     Route: 042
     Dates: start: 20221212, end: 20221215
  2. GANCICLOVIR [Suspect]
     Active Substance: GANCICLOVIR
     Indication: Cytomegalovirus infection
     Dosage: 200 MG, 1X/DAY
     Route: 042
     Dates: start: 20221213, end: 20221213
  3. GANCICLOVIR [Suspect]
     Active Substance: GANCICLOVIR
     Dosage: 400 MG, 1X/DAY
     Route: 042
     Dates: start: 20221214, end: 20221214
  4. GANCICLOVIR [Suspect]
     Active Substance: GANCICLOVIR
     Dosage: 200 MG, 1X/DAY
     Route: 042
     Dates: start: 20221215, end: 20221215

REACTIONS (2)
  - Thrombocytopenia [Recovering/Resolving]
  - Condition aggravated [Recovering/Resolving]

NARRATIVE: CASE EVENT DATE: 20221215
